FAERS Safety Report 5058412-1 (Version None)
Quarter: 2006Q2

REPORT INFORMATION
  Report Type: 
  Country: None (occurrence: None)
  Receive Date: 20060626
  Receipt Date: 20060413
  Transmission Date: 20061013
  Serious: Yes (Other)
  Sender: FDA-Public Use
  Company Number: PHEH2006US04909

PATIENT
  Age: 13 Year
  Sex: Male

DRUGS (2)
  1. FOCALIN XR [Suspect]
  2. ANAFRANCIL(CLOMIPRAMINE HYDROCHLORIDE) [Suspect]
     Dosage: 100 MG

REACTIONS (1)
  - CONVULSION [None]
